FAERS Safety Report 5248369-2 (Version None)
Quarter: 2007Q1

REPORT INFORMATION
  Report Type: 
  Country: None (occurrence: None)
  Receive Date: 20070227
  Receipt Date: 20070219
  Transmission Date: 20070707
  Serious: Yes (Death, Other)
  Sender: FDA-Public Use
  Company Number: US-SHR-US-2007-006368

PATIENT
  Age: 56 Year
  Sex: Female

DRUGS (3)
  1. MAGNEVIST [Suspect]
     Indication: ANGIOGRAM
     Dosage: UNK, 1 DOSE
     Route: 042
     Dates: start: 20011126, end: 20011126
  2. MAGNEVIST [Suspect]
     Dosage: 20 ML, 1 DOSE
     Route: 042
     Dates: start: 20021023, end: 20021023
  3. MAGNEVIST [Suspect]
     Dosage: 50 ML, 1 DOSE
     Route: 042
     Dates: start: 20041102, end: 20041102

REACTIONS (1)
  - NEPHROGENIC FIBROSING DERMOPATHY [None]
